FAERS Safety Report 6751769-2 (Version None)
Quarter: 2010Q2

REPORT INFORMATION
  Report Type: 
  Country: None (occurrence: None)
  Receive Date: 20100528
  Receipt Date: 20100517
  Transmission Date: 20101027
  Serious: Yes (Other)
  Sender: FDA-Public Use
  Company Number: 7004687

PATIENT
  Age: 45 Year
  Sex: Female
  Weight: 90 kg

DRUGS (7)
  1. REBIF [Suspect]
     Indication: RELAPSING-REMITTING MULTIPLE SCLEROSIS
     Dosage: 44 MCG, 3 IN 1 WK, SUBCUTANEOUS
     Route: 058
     Dates: start: 20090120, end: 20100503
  2. NOVANTRONE [Suspect]
     Indication: RELAPSING-REMITTING MULTIPLE SCLEROSIS
     Dates: start: 20090120
  3. SOLU-MEDROL [Concomitant]
  4. CLONIDINE [Concomitant]
  5. BENAZEPRIL HYDROCHLORIDE [Concomitant]
  6. NEURONTIN [Concomitant]
  7. VALIUM [Concomitant]

REACTIONS (5)
  - BLADDER DISORDER [None]
  - CONVULSION [None]
  - HEAD INJURY [None]
  - LOSS OF CONSCIOUSNESS [None]
  - MYALGIA [None]
